FAERS Safety Report 8019776-X (Version None)
Quarter: 2012Q1

REPORT INFORMATION
  Report Type: 
  Country: None (occurrence: None)
  Receive Date: 20120103
  Receipt Date: 20111111
  Transmission Date: 20120608
  Serious: No
  Sender: FDA-Public Use
  Company Number: US-PFIZER INC-2011317092

PATIENT

DRUGS (1)
  1. NIFEDIPINE [Suspect]

REACTIONS (2)
  - PALPITATIONS [None]
  - DRUG INEFFECTIVE [None]
